FAERS Safety Report 6359848-9 (Version None)
Quarter: 2009Q3

REPORT INFORMATION
  Report Type: 
  Country: None (occurrence: None)
  Receive Date: 20090917
  Receipt Date: 20090911
  Transmission Date: 20100115
  Serious: Yes (Hospitalization)
  Sender: FDA-Public Use
  Company Number: B0588559A

PATIENT
  Age: 54 Year
  Sex: Male

DRUGS (3)
  1. ZYLORIC [Suspect]
     Route: 048
     Dates: start: 20080501, end: 20080626
  2. ICAZ [Suspect]
     Route: 048
     Dates: start: 20080501, end: 20080626
  3. TAHOR [Concomitant]
     Route: 048

REACTIONS (7)
  - CYTOLYTIC HEPATITIS [None]
  - HYPERSENSITIVITY [None]
  - JAUNDICE [None]
  - PYREXIA [None]
  - RASH ERYTHEMATOUS [None]
  - RENAL FAILURE ACUTE [None]
  - TUBULOINTERSTITIAL NEPHRITIS [None]
